FAERS Safety Report 10646040 (Version 7)
Quarter: 2015Q1

REPORT INFORMATION
  Report Type: Spontaneous
  Country: ES (occurrence: None)
  Receive Date: 20141209
  Receipt Date: 20150225
  Transmission Date: 20150720
  Serious: Yes (Death, Life-Threatening, Hospitalization)
  Sender: FDA-Public Use
  Company Number: 2014MPI01503

PATIENT
  Age: 58 Year
  Sex: Female
  Weight: 88 kg

DRUGS (2)
  1. BRENTUXIMAB VEDOTIN [Suspect]
     Active Substance: BRENTUXIMAB VEDOTIN
     Indication: ANAPLASTIC LARGE CELL LYMPHOMA T- AND NULL-CELL TYPES
     Route: 042
     Dates: start: 20141103, end: 20141103
  2. BRENTUXIMAB VEDOTIN [Suspect]
     Active Substance: BRENTUXIMAB VEDOTIN
     Indication: ANAPLASTIC LARGE-CELL LYMPHOMA
     Route: 042
     Dates: start: 20141103, end: 20141103

REACTIONS (37)
  - Intestinal perforation [None]
  - Pancreatitis [None]
  - Respiratory distress [None]
  - Blood creatinine increased [None]
  - Haemodynamic instability [None]
  - Hepatocellular injury [None]
  - Cholestasis [None]
  - Pancreatic duct obstruction [None]
  - Pathogen resistance [None]
  - Splenic infarction [None]
  - Atrial fibrillation [None]
  - Blood bilirubin increased [None]
  - Red blood cell count decreased [None]
  - Rectal haemorrhage [None]
  - Pancreatic enlargement [None]
  - Platelet count decreased [None]
  - Multi-organ failure [None]
  - Intestinal obstruction [None]
  - Small intestinal perforation [None]
  - Macule [None]
  - Blood potassium decreased [None]
  - Haematocrit decreased [None]
  - Bone marrow toxicity [None]
  - Diarrhoea [None]
  - Continuous haemodiafiltration [None]
  - Chest X-ray abnormal [None]
  - Pancreatic duct dilatation [None]
  - Colitis [None]
  - Shock [None]
  - Lactic acidosis [None]
  - White blood cell count decreased [None]
  - Skin necrosis [None]
  - Staphylococcus test positive [None]
  - Hyponatraemia [None]
  - Haemoglobin decreased [None]
  - Toxicity to various agents [None]
  - Melaena [None]

NARRATIVE: CASE EVENT DATE: 20141110
